FAERS Safety Report 9552606 (Version 3)
Quarter: 2013Q4

REPORT INFORMATION
  Report Type: Spontaneous
  Country: US (occurrence: US)
  Receive Date: 20130925
  Receipt Date: 20131127
  Transmission Date: 20140711
  Serious: No
  Sender: FDA-Public Use
  Company Number: US-PFIZER INC-2013275847

PATIENT
  Age: 64 Year
  Sex: Female

DRUGS (1)
  1. CHANTIX [Suspect]
     Indication: TOBACCO USER
     Dosage: 1 MG, 2X/DAY
     Route: 048

REACTIONS (2)
  - Hot flush [Unknown]
  - Drug effect incomplete [Unknown]
